FAERS Safety Report 9700191 (Version 1)
Quarter: 2013Q4

REPORT INFORMATION
  Report Type: Spontaneous
  Country: FR (occurrence: None)
  Receive Date: 20131119
  Receipt Date: 20131119
  Transmission Date: 20140711
  Serious: Yes (Hospitalization)
  Sender: FDA-Public Use
  Company Number: 2013CP000137

PATIENT
  Age: 81 Year
  Sex: Female

DRUGS (13)
  1. PERFALGAN [Suspect]
     Route: 042
     Dates: start: 20130710, end: 20130714
  2. FLUINDIONE (FLUINDIONE) [Suspect]
     Route: 048
     Dates: start: 20130702, end: 20130716
  3. STILNOX [Suspect]
     Route: 048
     Dates: start: 20130702, end: 20130722
  4. CIPROFLOXACIN [Suspect]
     Route: 048
     Dates: start: 20130708, end: 20130722
  5. PHLOROGLUCINOL (PHLOROQLUCINOL) [Suspect]
     Dates: start: 20130705
  6. PREDNISOLONE SODIUM METAZOATE [Suspect]
     Dates: start: 20130712, end: 20130722
  7. LOVENOX [Suspect]
     Dates: start: 20130714, end: 20130721
  8. TRAMADOL HCL [Suspect]
     Route: 042
     Dates: start: 20130715
  9. PROFENID (KETOPROFEN) [Suspect]
     Route: 042
     Dates: start: 20130715
  10. DAFALGAN [Concomitant]
  11. KARDEGIC [Concomitant]
  12. PRESERVISION AREDS [Concomitant]
  13. MACROGOL [Concomitant]

REACTIONS (4)
  - Hepatocellular injury [None]
  - Cholestasis [None]
  - Hepatocellular injury [None]
  - Cholestasis [None]
